FAERS Safety Report 11347139 (Version 2)
Quarter: 2016Q1

REPORT INFORMATION
  Report Type: Spontaneous
  Country: US (occurrence: US)
  Receive Date: 20150806
  Receipt Date: 20160224
  Transmission Date: 20160525
  Serious: Yes (Hospitalization, Other)
  Sender: FDA-Public Use
  Company Number: US-BAYER-2015-394510

PATIENT
  Age: 24 Year
  Sex: Female
  Weight: 95.24 kg

DRUGS (3)
  1. MIRENA [Suspect]
     Active Substance: LEVONORGESTREL
     Indication: CONTRACEPTION
     Dosage: 20 MCG/24HR, CONT
     Route: 015
     Dates: start: 20100409, end: 20100526
  2. LORTAB 5/500 [Concomitant]
     Indication: PAIN
     Dosage: 5-500 MG EVERY 6 HOURS, AS NEEDED
     Route: 048
     Dates: start: 20100502
  3. ANAPROX DS [Concomitant]
     Active Substance: NAPROXEN SODIUM
     Dosage: 550MG
     Dates: start: 20100302

REACTIONS (2)
  - Device failure [None]
  - Uterine perforation [None]

NARRATIVE: CASE EVENT DATE: 201005
